FAERS Safety Report 12642830 (Version 2)
Quarter: 2016Q4

REPORT INFORMATION
  Report Type: Spontaneous
  Country: US (occurrence: US)
  Receive Date: 20160811
  Receipt Date: 20161004
  Transmission Date: 20170207
  Serious: Yes (Hospitalization)
  Sender: FDA-Public Use
  Company Number: US-ROCHE-1810948

PATIENT
  Sex: Male

DRUGS (1)
  1. ALECENSA [Suspect]
     Active Substance: ALECTINIB HYDROCHLORIDE
     Indication: LUNG NEOPLASM MALIGNANT
     Dosage: 4 CAPSULES TWICE DAILY, THE MOST RECENT DOSE WAS TAKEN ON 01/AUG/2016.
     Route: 065
     Dates: start: 201606, end: 20160801

REACTIONS (2)
  - Bone pain [Unknown]
  - Staphylococcal infection [Not Recovered/Not Resolved]
